FAERS Safety Report 4406012-6 (Version None)
Quarter: 2004Q3

REPORT INFORMATION
  Report Type: 
  Country: None (occurrence: None)
  Receive Date: 20040723
  Receipt Date: 20040317
  Transmission Date: 20050211
  Serious: No
  Sender: FDA-Public Use
  Company Number: US-GLAXOSMITHKLINE-A0503204A

PATIENT
  Age: 72 Year
  Sex: Male

DRUGS (4)
  1. AVANDIA [Suspect]
     Dosage: 4MG PER DAY
     Route: 048
     Dates: start: 20040314
  2. TOPROL-XL [Concomitant]
  3. DIOVAN [Concomitant]
  4. GLYBURIDE [Concomitant]

REACTIONS (2)
  - HEART RATE INCREASED [None]
  - HYPERGLYCAEMIA [None]
